FAERS Safety Report 23044419 (Version 1)
Quarter: 2023Q4

REPORT INFORMATION
  Report Type: Spontaneous
  Country: DE (occurrence: DE)
  Receive Date: 20231009
  Receipt Date: 20231009
  Transmission Date: 20240109
  Serious: Yes (Other)
  Sender: FDA-Public Use
  Company Number: None

PATIENT
  Age: 72 Year
  Sex: Female
  Weight: 74 kg

DRUGS (6)
  1. ALLOPURINOL [Suspect]
     Active Substance: ALLOPURINOL
     Indication: Memory impairment
     Route: 048
     Dates: start: 20220601, end: 20230602
  2. RAMIPRIL [Suspect]
     Active Substance: RAMIPRIL
     Indication: Memory impairment
     Route: 048
     Dates: start: 20220601, end: 20230602
  3. DILTIAZEM [Suspect]
     Active Substance: DILTIAZEM
     Indication: Memory impairment
     Route: 048
     Dates: start: 20220601, end: 20230602
  4. SITAGLIPTIN [Suspect]
     Active Substance: SITAGLIPTIN
     Indication: Memory impairment
     Route: 048
     Dates: start: 20220601, end: 20230602
  5. IBUPROFEN [Suspect]
     Active Substance: IBUPROFEN
     Indication: Pain management
     Route: 048
     Dates: start: 20220601, end: 20230602
  6. IBUPROFEN [Suspect]
     Active Substance: IBUPROFEN
     Indication: Arthralgia

REACTIONS (7)
  - Hyperthyroidism [Not Recovered/Not Resolved]
  - Cardiac discomfort [Not Recovered/Not Resolved]
  - Memory impairment [Not Recovered/Not Resolved]
  - Hypertension [Not Recovered/Not Resolved]
  - Arthralgia [Not Recovered/Not Resolved]
  - Pain [Not Recovered/Not Resolved]
  - Product use in unapproved indication [Unknown]

NARRATIVE: CASE EVENT DATE: 20220601
